FAERS Safety Report 8931515 (Version 1)
Quarter: 2012Q4

REPORT INFORMATION
  Report Type: 
  Country: US (occurrence: US)
  Receive Date: 20121128
  Receipt Date: 20121128
  Transmission Date: 20130627
  Serious: Yes (Other)
  Sender: FDA-Public Use
  Company Number: US-ASTRAZENECA-2012SE87762

PATIENT
  Sex: Male

DRUGS (4)
  1. BRILINTA [Suspect]
     Indication: ARTERIAL CATHETERISATION
     Route: 048
  2. BRILINTA [Suspect]
     Indication: ADVERSE EVENT
     Route: 048
  3. ANGIOMAX [Suspect]
     Indication: ARTERIAL CATHETERISATION
     Route: 065
  4. ANGIOMAX [Suspect]
     Indication: ADVERSE EVENT
     Route: 065

REACTIONS (1)
  - Cerebrovascular accident [Unknown]
